FAERS Safety Report 5277812-8 (Version None)
Quarter: 2007Q1

REPORT INFORMATION
  Report Type: 
  Country: None (occurrence: None)
  Receive Date: 20070327
  Receipt Date: 20070319
  Transmission Date: 20070707
  Serious: Yes (Hospitalization, Other)
  Sender: FDA-Public Use
  Company Number: JP-PFIZER INC-2006154446

PATIENT
  Sex: Male
  Weight: 67 kg

DRUGS (9)
  1. AZULFIDINE EN-TABS [Suspect]
     Indication: RHEUMATOID ARTHRITIS
     Dosage: DAILY DOSE:1000MG
     Route: 048
     Dates: start: 20060907, end: 20061020
  2. LOXONIN [Concomitant]
  3. ALL OTHER THERAPEUTIC PRODUCTS [Concomitant]
  4. MUCOSTA [Concomitant]
     Route: 048
     Dates: start: 20060101, end: 20061020
  5. CYANOCOBALAMIN [Concomitant]
     Route: 048
     Dates: start: 20060201, end: 20061020
  6. JUVELA [Concomitant]
     Route: 048
     Dates: start: 20060701, end: 20061020
  7. PREDNISOLONE [Concomitant]
     Route: 048
     Dates: start: 20060709, end: 20061010
  8. CLINORIL [Concomitant]
     Route: 048
     Dates: start: 20060820, end: 20061020
  9. GASTER [Concomitant]
     Route: 048
     Dates: start: 20060701, end: 20061020

REACTIONS (4)
  - AGRANULOCYTOSIS [None]
  - LEUKOPENIA [None]
  - MELAENA [None]
  - SEPSIS [None]
